FAERS Safety Report 23780894 (Version 1)
Quarter: 2024Q2

REPORT INFORMATION
  Report Type: Spontaneous
  Country: US (occurrence: US)
  Receive Date: 20240425
  Receipt Date: 20240425
  Transmission Date: 20240716
  Serious: No
  Sender: FDA-Public Use
  Company Number: US-SUN PHARMACEUTICAL INDUSTRIES LTD-2024R1-431327

PATIENT
  Age: 67 Year
  Sex: Female

DRUGS (1)
  1. ILUMYA [Suspect]
     Active Substance: TILDRAKIZUMAB-ASMN
     Indication: Psoriasis
     Dosage: UNKNOWN
     Route: 065
     Dates: start: 2021

REACTIONS (6)
  - Skin mass [Unknown]
  - Erythema [Unknown]
  - Nodule [Unknown]
  - Burning sensation [Unknown]
  - Rash pruritic [Unknown]
  - Paraesthesia [Unknown]
